FAERS Safety Report 16607040 (Version 1)
Quarter: 2019Q3

REPORT INFORMATION
  Report Type: Spontaneous
  Country: US (occurrence: US)
  Receive Date: 20190606
  Receipt Date: 20190606
  Transmission Date: 20191004
  Serious: No
  Sender: FDA-Public Use
  Company Number: None

PATIENT
  Sex: Female

DRUGS (12)
  1. ATENOLOL. [Suspect]
     Active Substance: ATENOLOL
  2. HYDROCHLOROT [Concomitant]
     Active Substance: HYDROCHLOROTHIAZIDE
  3. CALCIUM CARB [Concomitant]
     Active Substance: CALCIUM CARBONATE
  4. FUROSEMIDE. [Concomitant]
     Active Substance: FUROSEMIDE
  5. OMEGA-3 ACIDS [Concomitant]
     Active Substance: OMEGA-3 FATTY ACIDS
  6. DOXYCYCL HYC [Concomitant]
  7. MARINOL [Concomitant]
     Active Substance: DRONABINOL
  8. ASPIRIN. [Concomitant]
     Active Substance: ASPIRIN
  9. CHOLECALCIF POW [Concomitant]
  10. FUROSEMIDE. [Concomitant]
     Active Substance: FUROSEMIDE
  11. ALECENSA [Suspect]
     Active Substance: ALECTINIB HYDROCHLORIDE
     Indication: DRUG THERAPY
     Route: 048
     Dates: start: 20181103
  12. POTASSIUM [Concomitant]
     Active Substance: POTASSIUM

REACTIONS (1)
  - Myocardial infarction [None]
